FAERS Safety Report 4845100-7 (Version None)
Quarter: 2005Q4

REPORT INFORMATION
  Report Type: 
  Country: None (occurrence: None)
  Receive Date: 20051205
  Receipt Date: 20051123
  Transmission Date: 20060501
  Serious: Yes (Hospitalization, Other)
  Sender: FDA-Public Use
  Company Number: US-MERCK-0512USA00324

PATIENT
  Age: 57 Year
  Sex: Female
  Weight: 73 kg

DRUGS (9)
  1. VIOXX [Suspect]
     Indication: ARTHRITIS
     Route: 048
     Dates: start: 20020301, end: 20031201
  2. VIOXX [Suspect]
     Route: 048
     Dates: start: 20040301, end: 20040901
  3. VIOXX [Suspect]
     Indication: INJURY
     Route: 048
     Dates: start: 20020301, end: 20031201
  4. VIOXX [Suspect]
     Route: 048
     Dates: start: 20040301, end: 20040901
  5. AMANTADINE HYDROCHLORIDE [Concomitant]
     Route: 065
  6. BACLOFEN [Concomitant]
     Route: 065
  7. ALLEGRA [Concomitant]
     Route: 065
  8. REBIF [Concomitant]
     Route: 065
  9. NEURONTIN [Concomitant]
     Route: 065

REACTIONS (7)
  - ANXIETY [None]
  - CARDIAC DISORDER [None]
  - CARDIAC MURMUR [None]
  - INSOMNIA [None]
  - LIMB INJURY [None]
  - MYOCARDIAL INFARCTION [None]
  - SPINAL DISORDER [None]
